FAERS Safety Report 14949287 (Version 1)
Quarter: 2018Q2

REPORT INFORMATION
  Report Type: Spontaneous
  Country: US (occurrence: US)
  Receive Date: 20180529
  Receipt Date: 20180529
  Transmission Date: 20180711
  Serious: Yes (Hospitalization)
  Sender: FDA-Public Use
  Company Number: US-ANIPHARMA-2018-US-008005

PATIENT
  Age: 11 Year
  Sex: Female

DRUGS (5)
  1. OXCARBAZEPINE (NON-SPECIFIC) [Suspect]
     Active Substance: OXCARBAZEPINE
     Dosage: 300 MG TWICE DAILY
  2. ZONISAMIDE. [Concomitant]
     Active Substance: ZONISAMIDE
     Dosage: 200 MG DAILY
  3. CLONAZEPAM. [Concomitant]
     Active Substance: CLONAZEPAM
     Dosage: 0.5 MG AS NEEDED
  4. DIAZEPAM. [Concomitant]
     Active Substance: DIAZEPAM
     Dosage: 10 MG AS NEEDED
     Route: 054
  5. CLOBAZAM [Concomitant]
     Active Substance: CLOBAZAM
     Dosage: 10 MG TWICE DAILY

REACTIONS (1)
  - Drug reaction with eosinophilia and systemic symptoms [Recovered/Resolved]
